FAERS Safety Report 25096039 (Version 1)
Quarter: 2025Q1

REPORT INFORMATION
  Report Type: Spontaneous
  Country: CN (occurrence: CN)
  Receive Date: 20250319
  Receipt Date: 20250319
  Transmission Date: 20250408
  Serious: Yes (Other)
  Sender: BAXTER
  Company Number: None

PATIENT
  Age: 52 Year
  Sex: Female
  Weight: 55 kg

DRUGS (4)
  1. CYCLOPHOSPHAMIDE [Suspect]
     Active Substance: CYCLOPHOSPHAMIDE
     Indication: Breast cancer female
     Route: 041
     Dates: start: 20250103, end: 20250209
  2. SODIUM CHLORIDE [Suspect]
     Active Substance: SODIUM CHLORIDE
     Indication: Medication dilution
     Route: 041
     Dates: start: 20250103, end: 20250209
  3. SODIUM CHLORIDE [Suspect]
     Active Substance: SODIUM CHLORIDE
     Route: 041
     Dates: start: 20250103, end: 20250209
  4. EPIRUBICIN HYDROCHLORIDE [Suspect]
     Active Substance: EPIRUBICIN HYDROCHLORIDE
     Indication: Breast cancer female
     Route: 041
     Dates: start: 20250103, end: 20250209

REACTIONS (6)
  - Cardiotoxicity [Unknown]
  - Electrocardiogram T wave amplitude decreased [Unknown]
  - Ventricular extrasystoles [Unknown]
  - Electrocardiogram ST-T change [Unknown]
  - Electrocardiogram abnormal [Unknown]
  - Sinus arrhythmia [Unknown]

NARRATIVE: CASE EVENT DATE: 20250224
